FAERS Safety Report 9086815 (Version 2)
Quarter: 2014Q1

REPORT INFORMATION
  Report Type: Spontaneous
  Country: FR (occurrence: FR)
  Receive Date: 20130131
  Receipt Date: 20140106
  Transmission Date: 20141002
  Serious: Yes (Hospitalization, Other)
  Sender: FDA-Public Use
  Company Number: FR-PFIZER INC-2013033302

PATIENT
  Age: 62 Year
  Sex: Female

DRUGS (3)
  1. TAHOR [Suspect]
     Dosage: UNK
     Route: 048
  2. PARACETAMOL [Suspect]
     Indication: INFLUENZA
     Dosage: UNK
     Route: 048
     Dates: start: 20121123, end: 20121130
  3. LEVOTHYROX [Suspect]
     Dosage: UNK

REACTIONS (3)
  - Pancytopenia [Not Recovered/Not Resolved]
  - C-reactive protein increased [Recovered/Resolved]
  - Large granular lymphocytosis [Unknown]
